FAERS Safety Report 9097889 (Version 2)
Quarter: 2013Q1

REPORT INFORMATION
  Report Type: Spontaneous
  Country: NZ (occurrence: NZ)
  Receive Date: 20130212
  Receipt Date: 20130226
  Transmission Date: 20140127
  Serious: Yes (Other)
  Sender: FDA-Public Use
  Company Number: NZ-BRISTOL-MYERS SQUIBB COMPANY-17365446

PATIENT
  Age: 61 Year
  Sex: Male

DRUGS (5)
  1. METFORMIN HCL [Suspect]
     Indication: DIABETES MELLITUS
     Dosage: NOV2006-24NOV2009-1000MG?24NOV2009-ONG-2000MG
     Route: 048
     Dates: start: 200611
  2. OMEGA-3 [Concomitant]
     Dosage: 3DF:3 TABS
     Route: 048
     Dates: start: 200907
  3. MAGNESIUM [Concomitant]
     Dosage: 1DF:1 TAB
     Route: 048
     Dates: start: 200905
  4. CETRIZINE [Concomitant]
     Route: 048
     Dates: start: 20100331
  5. SIMVASTATIN [Concomitant]
     Route: 048
     Dates: start: 20100623

REACTIONS (1)
  - Atrial flutter [Recovered/Resolved with Sequelae]
